FAERS Safety Report 17694008 (Version 1)
Quarter: 2020Q2

REPORT INFORMATION
  Report Type: Spontaneous
  Country: US (occurrence: US)
  Receive Date: 20200422
  Receipt Date: 20200422
  Transmission Date: 20200714
  Serious: Yes (Hospitalization, Other)
  Sender: FDA-Public Use
  Company Number: US-PFIZER INC-2019426981

PATIENT
  Age: 65 Year
  Sex: Female
  Weight: 64.41 kg

DRUGS (8)
  1. PREDNISONE. [Concomitant]
     Active Substance: PREDNISONE
     Indication: RHEUMATOID ARTHRITIS
     Dosage: 5 MG, DAILY (TAKING FOR 20 YEARS)
  2. HYDROCODONE [Concomitant]
     Active Substance: HYDROCODONE
     Dosage: UNK, 2X/DAY (7.5/325 TAKE ONCE EVERY 12 HOURS BUT SOMETIMES SHE ONLY TAKES IT AT BEDTIME TO SLEEP)
     Route: 042
  3. HYDROCODONE [Concomitant]
     Active Substance: HYDROCODONE
     Indication: RHEUMATOID ARTHRITIS
     Dosage: UNK, DAILY (7.5/325 TAKE ONCE EVERY 12 HOURS BUT SOMETIMES SHE ONLY TAKES IT AT BEDTIME TO SLEEP)
     Route: 042
  4. XELJANZ [Suspect]
     Active Substance: TOFACITINIB CITRATE
     Indication: RHEUMATOID ARTHRITIS
     Dosage: 5 MG, 2X/DAY
     Route: 048
     Dates: end: 201911
  5. METHOTREXATE. [Suspect]
     Active Substance: METHOTREXATE
     Indication: RHEUMATOID ARTHRITIS
     Dosage: 25 MG, WEEKLY (2.5 MG. TAKE 10 TABLETS EVERY SUNDAY BY MOUTH WHEN SHE CAN)
     Route: 048
     Dates: end: 20200308
  6. REMICADE [Concomitant]
     Active Substance: INFLIXIMAB
     Dosage: UNK
     Route: 042
  7. HUMERA [Concomitant]
     Active Substance: ADALIMUMAB
     Dosage: UNK
     Route: 042
  8. ORENCIA [Concomitant]
     Active Substance: ABATACEPT
     Dosage: UNK
     Route: 042

REACTIONS (2)
  - Accident [Unknown]
  - Upper limb fracture [Unknown]

NARRATIVE: CASE EVENT DATE: 20200308
